FAERS Safety Report 4536743-9 (Version None)
Quarter: 2004Q4

REPORT INFORMATION
  Report Type: 
  Country: None (occurrence: None)
  Receive Date: 20041220
  Receipt Date: 20041203
  Transmission Date: 20050328
  Serious: Yes (Death, Life-Threatening)
  Sender: FDA-Public Use
  Company Number: 2004AP05998

PATIENT
  Age: 78 Year
  Sex: Male

DRUGS (16)
  1. OMEPRAL [Suspect]
     Indication: ANASTOMOTIC HAEMORRHAGE
     Dosage: 10 MG DAILY PO
     Route: 048
     Dates: start: 20041012, end: 20041026
  2. OMEPRAL [Suspect]
     Indication: INTRA-ABDOMINAL HAEMORRHAGE
     Dosage: 10 MG DAILY PO
     Route: 048
     Dates: start: 20041012, end: 20041026
  3. OMEPRAL [Suspect]
     Indication: ANASTOMOTIC HAEMORRHAGE
     Dosage: 20 MG DAILY PO
     Route: 048
     Dates: start: 20041115, end: 20041121
  4. OMEPRAL [Suspect]
     Indication: INTRA-ABDOMINAL HAEMORRHAGE
     Dosage: 20 MG DAILY PO
     Route: 048
     Dates: start: 20041115, end: 20041121
  5. OMEPRAL [Suspect]
     Indication: INTRA-ABDOMINAL HAEMORRHAGE
     Dosage: NI
     Dates: start: 20041124
  6. WARFARIN SODIUM [Suspect]
     Indication: ATRIAL FIBRILLATION
     Dosage: 3 MG DAILY PO
     Route: 048
     Dates: start: 20041030, end: 20041110
  7. WARFARIN SODIUM [Suspect]
     Dosage: 1.5 MG DAILY PO
     Route: 048
     Dates: start: 20041111, end: 20041121
  8. BIO THREE [Concomitant]
  9. GANATON [Concomitant]
  10. EXCELASE [Concomitant]
  11. DEPAS [Concomitant]
  12. ARTIST [Concomitant]
  13. ASCORBIC ACIC [Concomitant]
  14. VITAMINEDIN          INTRAVENOUS [Concomitant]
  15. PHYSIO 35 [Concomitant]
  16. AMINOFLUID [Concomitant]

REACTIONS (13)
  - ASCITES [None]
  - ATRIAL FIBRILLATION [None]
  - BLOOD PRESSURE DECREASED [None]
  - CARDIO-RESPIRATORY ARREST [None]
  - DRUG INTERACTION [None]
  - GASTRECTOMY [None]
  - GASTROINTESTINAL HAEMORRHAGE [None]
  - HAEMATEMESIS [None]
  - INTERNATIONAL NORMALISED RATIO INCREASED [None]
  - INTRA-ABDOMINAL HAEMORRHAGE [None]
  - POST PROCEDURAL COMPLICATION [None]
  - PROTHROMBIN TIME PROLONGED [None]
  - SHOCK HAEMORRHAGIC [None]
